FAERS Safety Report 6438505-4 (Version None)
Quarter: 2009Q4

REPORT INFORMATION
  Report Type: 
  Country: None (occurrence: None)
  Receive Date: 20091110
  Receipt Date: 20091102
  Transmission Date: 20100525
  Serious: Yes (Death, Hospitalization)
  Sender: FDA-Public Use
  Company Number: OMPQ-NO-0911S-0921

PATIENT
  Age: 80 Year
  Sex: Male

DRUGS (8)
  1. OMNIPAQUE 350 [Suspect]
     Indication: JAUNDICE
     Dosage: SINGLE DOSE, I.V.
     Route: 042
     Dates: start: 20090530, end: 20090530
  2. OMNIPAQUE 350 [Suspect]
     Indication: MUSCULAR WEAKNESS
     Dosage: SINGLE DOSE, I.V.
     Route: 042
     Dates: start: 20090530, end: 20090530
  3. SIMVASTATIN [Suspect]
  4. BETAMETHASONE SODIUM PHOSPHATE (BETAPRED) [Concomitant]
  5. ADALAT [Concomitant]
  6. ENOXAPARIN SODIUM [Concomitant]
  7. ALLOPURINOL [Concomitant]
  8. ASPIRIN [Concomitant]

REACTIONS (4)
  - GENERAL PHYSICAL HEALTH DETERIORATION [None]
  - REFUSAL OF TREATMENT BY PATIENT [None]
  - RENAL FAILURE ACUTE [None]
  - RHABDOMYOLYSIS [None]
